FAERS Safety Report 8122767-1 (Version None)
Quarter: 2012Q1

REPORT INFORMATION
  Report Type: 
  Country: None (occurrence: None)
  Receive Date: 20120208
  Receipt Date: 20120131
  Transmission Date: 20120608
  Serious: No
  Sender: FDA-Public Use
  Company Number: US-BIOGENIDEC-2012BI003924

PATIENT
  Age: 57 Year
  Sex: Female

DRUGS (22)
  1. TRIAMCINOLONE [Concomitant]
     Indication: STRESS
     Route: 061
  2. CIPROFLOXACIN [Concomitant]
     Indication: CYSTITIS
  3. BACLOFEN [Concomitant]
     Indication: MUSCLE SPASMS
  4. ESTRODIAL [Concomitant]
     Indication: MENOPAUSE
  5. GABAPENTIN [Concomitant]
     Indication: NEURALGIA
  6. HYDROCHLOROTHIAZIDE [Concomitant]
     Indication: FLUID OVERLOAD
  7. PRAMAPAXOLE [Concomitant]
     Indication: RESTLESS LEGS SYNDROME
  8. CRESTOR [Concomitant]
     Indication: GENERAL SYMPTOM
  9. LEXAPRO [Concomitant]
     Indication: DEPRESSION
  10. TYSABRI [Suspect]
     Indication: MULTIPLE SCLEROSIS
     Route: 042
     Dates: start: 20120123
  11. VITAMIN D [Concomitant]
     Indication: VITAMIN D DECREASED
  12. AMPYRA [Concomitant]
     Indication: GAIT DISTURBANCE
  13. HYDROCHLOROTHIAZIDE [Concomitant]
     Indication: OEDEMA PERIPHERAL
  14. CELEBREX [Concomitant]
     Indication: ARTHRITIS
  15. CRESTOR [Concomitant]
     Indication: CARDIAC DISORDER
  16. AMPHETAMINE ER [Concomitant]
     Indication: FATIGUE
  17. LUNESTA [Concomitant]
     Indication: SLEEP DISORDER
  18. HYDROCODONE BITARTRATE AND ACETAMINOPHEN [Concomitant]
     Indication: PAIN IN EXTREMITY
  19. HYDROCODONE BITARTRATE AND ACETAMINOPHEN [Concomitant]
     Indication: PAIN
  20. HYDROCODONE BITARTRATE AND ACETAMINOPHEN [Concomitant]
     Indication: ARTHRITIS
  21. SAVELLA [Concomitant]
     Indication: DEPRESSION
  22. SAVELLA [Concomitant]
     Indication: FIBROMYALGIA

REACTIONS (8)
  - HEADACHE [None]
  - NAUSEA [None]
  - ANXIETY [None]
  - FATIGUE [None]
  - ARTHRALGIA [None]
  - FLUSHING [None]
  - STOMATITIS [None]
  - BAND SENSATION [None]
